FAERS Safety Report 15797575 (Version 1)
Quarter: 2019Q1

REPORT INFORMATION
  Report Type: Spontaneous
  Country: US (occurrence: US)
  Receive Date: 20190103
  Receipt Date: 20190103
  Transmission Date: 20190417
  Serious: No
  Sender: FDA-Public Use
  Company Number: None

PATIENT

DRUGS (2)
  1. BUPROPION SR BUPROPION HCL SUSTAINED RELEASE [Suspect]
     Active Substance: BUPROPION HYDROCHLORIDE
     Route: 048
  2. BUPROPION HCL EXTENDED RELEASE BUPROPION EXTENDED RELEASE [Suspect]
     Active Substance: BUPROPION HYDROCHLORIDE
     Route: 048

REACTIONS (2)
  - Product packaging confusion [None]
  - Product name confusion [None]
